FAERS Safety Report 8138140-6 (Version None)
Quarter: 2012Q1

REPORT INFORMATION
  Report Type: 
  Country: None (occurrence: None)
  Receive Date: 20120103
  Receipt Date: 20110914
  Transmission Date: 20120608
  Serious: No
  Sender: FDA-Public Use
  Company Number: AE-2011-001527

PATIENT
  Sex: Male
  Weight: 81.6475 kg

DRUGS (2)
  1. LIPITOR [Concomitant]
  2. INCIVEK [Suspect]
     Dates: start: 20110801

REACTIONS (4)
  - HYPERHIDROSIS [None]
  - ANAEMIA [None]
  - WEIGHT DECREASED [None]
  - MALAISE [None]
